FAERS Safety Report 10474106 (Version 1)
Quarter: 2014Q3

REPORT INFORMATION
  Report Type: Spontaneous
  Country: US (occurrence: US)
  Receive Date: 20140924
  Receipt Date: 20140924
  Transmission Date: 20150326
  Serious: No
  Sender: FDA-Public Use
  Company Number: US-ASTRAZENECA-2013SE78141

PATIENT
  Age: 862 Month
  Sex: Female
  Weight: 57.6 kg

DRUGS (4)
  1. ACTONEL [Concomitant]
     Active Substance: RISEDRONATE SODIUM
     Indication: BONE DISORDER
     Dosage: 150 MG. MONTH
     Route: 048
  2. MEDICATION FOR HIGH BLOOD PRESSURE [Concomitant]
     Active Substance: UNSPECIFIED INGREDIENT
  3. LISINOPRIL. [Suspect]
     Active Substance: LISINOPRIL
     Indication: HYPERTENSION
     Route: 048
     Dates: start: 201304
  4. SYNTHROID [Concomitant]
     Active Substance: LEVOTHYROXINE SODIUM
     Indication: HYPOTHYROIDISM
     Dosage: 50 MCG. DAILY
     Route: 048

REACTIONS (4)
  - Muscle spasms [Not Recovered/Not Resolved]
  - Insomnia [Not Recovered/Not Resolved]
  - Abdominal distension [Not Recovered/Not Resolved]
  - Peripheral swelling [Not Recovered/Not Resolved]

NARRATIVE: CASE EVENT DATE: 201304
